FAERS Safety Report 19303542 (Version 1)
Quarter: 2021Q2

REPORT INFORMATION
  Report Type: Spontaneous
  Country: DE (occurrence: DE)
  Receive Date: 20210525
  Receipt Date: 20210525
  Transmission Date: 20210717
  Serious: Yes (Other)
  Sender: FDA-Public Use
  Company Number: DE-MYLANLABS-2021M1030045

PATIENT
  Age: 85 Year
  Sex: Male

DRUGS (1)
  1. OLMESARTAN MEDOXOMIL. [Suspect]
     Active Substance: OLMESARTAN MEDOXOMIL
     Indication: PRODUCT USED FOR UNKNOWN INDICATION
     Dosage: 40 MILLIGRAM, QD (SINCE }3 YEARS)
     Route: 065

REACTIONS (1)
  - Gastrointestinal disorder [Recovered/Resolved]
